FAERS Safety Report 7937240-0 (Version None)
Quarter: 2011Q4

REPORT INFORMATION
  Report Type: 
  Country: None (occurrence: None)
  Receive Date: 20111123
  Receipt Date: 20111121
  Transmission Date: 20120403
  Serious: Yes (Other)
  Sender: FDA-Public Use
  Company Number: DE-GLAXOSMITHKLINE-D0073531A

PATIENT
  Sex: Female

DRUGS (1)
  1. LAMICTAL [Suspect]
     Dosage: 150MG PER DAY
     Route: 048

REACTIONS (3)
  - BLOOD FIBRINOGEN DECREASED [None]
  - THROMBIN TIME PROLONGED [None]
  - COAGULOPATHY [None]
